FAERS Safety Report 10101119 (Version 4)
Quarter: 2014Q2

REPORT INFORMATION
  Report Type: Report from Study
  Country: FR (occurrence: FR)
  Receive Date: 20140424
  Receipt Date: 20140520
  Transmission Date: 20141212
  Serious: Yes (Life-Threatening)
  Sender: FDA-Public Use
  Company Number: FR-ROCHE-1386364

PATIENT
  Age: 62 Year
  Sex: Male
  Weight: 69 kg

DRUGS (7)
  1. OBINUTUZUMAB [Suspect]
     Indication: CHRONIC LYMPHOCYTIC LEUKAEMIA
     Dosage: INFUSION RATE :12.5?DATE OF LAST DOSE PRIOR TO SAE: 15/APR/2014
     Route: 042
     Dates: start: 20140415, end: 20140415
  2. OBINUTUZUMAB [Suspect]
     Dosage: INFUSION RATE :25
     Route: 042
     Dates: start: 20140415, end: 20140415
  3. INEXIUM [Concomitant]
     Route: 048
     Dates: start: 20140415, end: 20140415
  4. RASBURICASE [Concomitant]
     Route: 042
     Dates: start: 20140415, end: 20140415
  5. POLARAMINE [Concomitant]
     Route: 042
     Dates: start: 20140415
  6. PERFALGAN [Concomitant]
     Route: 065
     Dates: start: 20140415, end: 20140415
  7. DEXAMETHASONE [Concomitant]
     Route: 042
     Dates: start: 20140415

REACTIONS (1)
  - Cytokine release syndrome [Recovered/Resolved]
